FAERS Safety Report 8419569-5 (Version None)
Quarter: 2012Q2

REPORT INFORMATION
  Report Type: 
  Country: None (occurrence: None)
  Receive Date: 20120607
  Receipt Date: 20120606
  Transmission Date: 20120825
  Serious: No
  Sender: FDA-Public Use
  Company Number: US-BAYER-2012-055783

PATIENT
  Age: 54 Year
  Sex: Male

DRUGS (1)
  1. STAXYN [Suspect]
     Dosage: 10 MG, QD
     Route: 048
     Dates: start: 20120301, end: 20120531

REACTIONS (1)
  - ERECTILE DYSFUNCTION [None]
